FAERS Safety Report 5863745-2 (Version None)
Quarter: 2008Q3

REPORT INFORMATION
  Report Type: 
  Country: None (occurrence: None)
  Receive Date: 20080828
  Receipt Date: 20080819
  Transmission Date: 20090109
  Serious: Yes (Hospitalization)
  Sender: FDA-Public Use
  Company Number: FR-GENENTECH-266955

PATIENT
  Sex: Female

DRUGS (7)
  1. HERCEPTIN [Suspect]
     Indication: BREAST CANCER
     Dosage: 520 MG, UNK
     Route: 042
     Dates: start: 20080616, end: 20080616
  2. HERCEPTIN [Suspect]
     Dosage: 390 MG, UNK
     Dates: start: 20080707
  3. HERCEPTIN [Suspect]
     Dosage: 390 MG, UNK
     Dates: start: 20080728
  4. DOCETAXEL [Concomitant]
     Indication: DRUG USE FOR UNKNOWN INDICATION
     Dosage: 160 MG, UNK
  5. PERINDOPRIL ERBUMINE [Concomitant]
     Indication: HYPERTENSION
  6. ESTRADIOL VALERATE [Concomitant]
     Indication: DRUG USE FOR UNKNOWN INDICATION
  7. MEDROXYPROGESTERONE ACETATE [Concomitant]
     Indication: DRUG USE FOR UNKNOWN INDICATION

REACTIONS (3)
  - ARTHRALGIA [None]
  - FORMICATION [None]
  - TREMOR [None]
